FAERS Safety Report 7415651-X (Version None)
Quarter: 2011Q2

REPORT INFORMATION
  Report Type: 
  Country: None (occurrence: None)
  Receive Date: 20110414
  Receipt Date: 20110411
  Transmission Date: 20111010
  Serious: Yes (Death)
  Sender: FDA-Public Use
  Company Number: US-GILEAD-2011-0038160

PATIENT
  Sex: Male

DRUGS (4)
  1. LETAIRIS [Suspect]
     Indication: CARDIAC VALVE DISEASE
     Route: 048
     Dates: start: 20110310, end: 20110401
  2. TYVASO [Concomitant]
  3. LETAIRIS [Suspect]
     Indication: CORONARY ARTERY DISEASE
  4. LETAIRIS [Suspect]
     Indication: PULMONARY HYPERTENSION
     Route: 048
     Dates: start: 20071212

REACTIONS (3)
  - CARDIAC FAILURE CONGESTIVE [None]
  - CARDIAC ARREST [None]
  - RENAL FAILURE [None]
